FAERS Safety Report 5776185-1 (Version None)
Quarter: 2008Q2

REPORT INFORMATION
  Report Type: 
  Country: None (occurrence: None)
  Receive Date: 20080613
  Receipt Date: 20080529
  Transmission Date: 20081010
  Serious: Yes (Hospitalization, Other)
  Sender: FDA-Public Use
  Company Number: 2008001152

PATIENT
  Age: 75 Year
  Sex: Male

DRUGS (7)
  1. ERLOTINIB (ERLOTINIB) (TABLET) (ERLOTINIB) [Suspect]
     Indication: NON-SMALL CELL LUNG CANCER
     Dosage: (150 MG, QD), ORAL
     Route: 048
     Dates: start: 20080501, end: 20080517
  2. ASPIRIN [Concomitant]
  3. METFORMIN HCL [Concomitant]
  4. MELIZIDE (GLIPIZIDE) [Concomitant]
  5. PERINDOPRIL ERBUMINE [Concomitant]
  6. SIMVASTATIN [Concomitant]
  7. LOPERAMIDE [Concomitant]

REACTIONS (7)
  - CONFUSIONAL STATE [None]
  - DIARRHOEA [None]
  - HAEMOGLOBIN INCREASED [None]
  - HYPOMAGNESAEMIA [None]
  - NEUTROPENIA [None]
  - SOMNOLENCE [None]
  - THROMBOCYTOPENIA [None]
